FAERS Safety Report 21141627 (Version 1)
Quarter: 2022Q3

REPORT INFORMATION
  Report Type: Spontaneous
  Country: MY (occurrence: MY)
  Receive Date: 20220728
  Receipt Date: 20220728
  Transmission Date: 20221027
  Serious: Yes (Other)
  Sender: FDA-Public Use
  Company Number: MY-MYLANLABS-2022M1079729

PATIENT
  Age: 69 Year
  Sex: Male

DRUGS (8)
  1. VANCOMYCIN [Suspect]
     Active Substance: VANCOMYCIN
     Indication: Endophthalmitis
     Dosage: UNK
  2. VANCOMYCIN [Suspect]
     Active Substance: VANCOMYCIN
     Dosage: REPEATED INTRAVITREAL 1MG/0.1ML
  3. DEXAMETHASONE [Concomitant]
     Active Substance: DEXAMETHASONE
     Indication: Endophthalmitis
     Dosage: TOPICAL 0.1%, POST-OPERATIVELY
  4. DEXAMETHASONE [Concomitant]
     Active Substance: DEXAMETHASONE
     Dosage: 0.4MG/ 0.1ML, REPEATED INTRAVITREAL
  5. CEFTAZIDIME [Concomitant]
     Active Substance: CEFTAZIDIME
     Indication: Endophthalmitis
     Dosage: UNK
  6. CEFTAZIDIME [Concomitant]
     Active Substance: CEFTAZIDIME
     Dosage: 2.25MG/0.1ML, REPEATED INTRAVITREAL
  7. MOXIFLOXACIN [Concomitant]
     Active Substance: MOXIFLOXACIN
     Dosage: TOPICAL 0.5%, POST-OPERATIVELY
     Route: 065
  8. MOXIFLOXACIN [Concomitant]
     Active Substance: MOXIFLOXACIN
     Dosage: 400 MILLIGRAM, QD, IN COMBINATION WITH 2 HOURLY DOSE OF TOPICAL MOXIFLOXACIN 0.5%
     Route: 048

REACTIONS (5)
  - Flat anterior chamber of eye [Unknown]
  - Ocular hyperaemia [Unknown]
  - Eye pain [Unknown]
  - Iris bombe [Recovered/Resolved]
  - Off label use [Unknown]
